FAERS Safety Report 8899271 (Version 1)
Quarter: 2012Q4

REPORT INFORMATION
  Report Type: 
  Country: US (occurrence: US)
  Receive Date: 20121108
  Receipt Date: 20121108
  Transmission Date: 20130627
  Serious: No
  Sender: FDA-Public Use
  Company Number: US-AMGEN-USASP2012035338

PATIENT
  Age: 40 Year
  Sex: Female

DRUGS (6)
  1. ENBREL [Suspect]
     Indication: PRODUCT USED FOR UNKNOWN INDICATION
     Dosage: 50 mg, qwk
     Route: 058
  2. METHOTREXATE [Concomitant]
  3. PLAQUENIL                          /00072603/ [Concomitant]
     Dosage: 200 mg, UNK
  4. CALCIUM +D                         /00188401/ [Concomitant]
  5. GLUCOSAMINE + CHONDROITIN          /01430901/ [Concomitant]
  6. MULTIVITAMINS [Concomitant]

REACTIONS (4)
  - Dry mouth [Unknown]
  - Dry skin [Unknown]
  - Dry eye [Unknown]
  - Eye infection [Unknown]
